FAERS Safety Report 10222062 (Version 1)
Quarter: 2014Q2

REPORT INFORMATION
  Report Type: Spontaneous
  Country: US (occurrence: None)
  Receive Date: 20140606
  Receipt Date: 20140606
  Transmission Date: 20141212
  Serious: Yes (Other)
  Sender: FDA-Public Use
  Company Number: None

PATIENT
  Age: 54 Year
  Sex: Female
  Weight: 54.43 kg

DRUGS (2)
  1. CLINDAMYCIN 300 CLEOCIN [Suspect]
     Indication: BLISTER INFECTED
     Route: 048
     Dates: start: 20140530, end: 20140531
  2. KEFLEX [Suspect]
     Indication: RASH
     Dosage: 1 PILL THREE TIMES DAILY  TABKEN BY MOUTH
     Route: 048

REACTIONS (5)
  - Rash erythematous [None]
  - Lymphatic disorder [None]
  - Swelling [None]
  - Rash pustular [None]
  - Chills [None]
